FAERS Safety Report 14514371 (Version 2)
Quarter: 2018Q1

REPORT INFORMATION
  Report Type: Spontaneous
  Country: US (occurrence: US)
  Receive Date: 20180209
  Receipt Date: 20180316
  Transmission Date: 20180509
  Serious: Yes (Disabling, Other)
  Sender: FDA-Public Use
  Company Number: US-REGENERON PHARMACEUTICALS, INC.-2018-12870

PATIENT

DRUGS (1)
  1. EYLEA [Suspect]
     Active Substance: AFLIBERCEPT
     Indication: NEOVASCULAR AGE-RELATED MACULAR DEGENERATION
     Dosage: LAST INJECTION PRIOR TO EVENT, UNK
     Dates: start: 20180118, end: 20180118

REACTIONS (7)
  - Anterior chamber cell [Unknown]
  - Corneal oedema [Unknown]
  - Eye inflammation [Recovering/Resolving]
  - Eye pain [Unknown]
  - Vitreous floaters [Not Recovered/Not Resolved]
  - Vitrectomy [Unknown]
  - Blindness transient [Recovered/Resolved]

NARRATIVE: CASE EVENT DATE: 201801
